FAERS Safety Report 8482279-2 (Version None)
Quarter: 2012Q3

REPORT INFORMATION
  Report Type: 
  Country: None (occurrence: None)
  Receive Date: 20120702
  Receipt Date: 20120629
  Transmission Date: 20120928
  Serious: Yes (Other)
  Sender: FDA-Public Use
  Company Number: PHHO2011DE10677

PATIENT
  Sex: Female
  Weight: 68 kg

DRUGS (2)
  1. ZOLEDRONOC ACID [Suspect]
     Indication: METASTASES TO BONE
     Dosage: 4 ML, UNK
     Dates: start: 20090303, end: 20100505
  2. TAMOXIFEN CITRATE [Concomitant]
     Indication: BREAST CANCER
     Dosage: 20 MG, UNK
     Route: 048
     Dates: start: 20090201, end: 20100301

REACTIONS (1)
  - OSTEONECROSIS OF JAW [None]
